FAERS Safety Report 21371475 (Version 1)
Quarter: 2022Q3

REPORT INFORMATION
  Report Type: Spontaneous
  Country: CZ (occurrence: CZ)
  Receive Date: 20220923
  Receipt Date: 20220923
  Transmission Date: 20221027
  Serious: Yes (Other)
  Sender: FDA-Public Use
  Company Number: CZ-MYLANLABS-2022M1095092

PATIENT
  Sex: Female
  Weight: 50 kg

DRUGS (8)
  1. IRINOTECAN [Suspect]
     Active Substance: IRINOTECAN
     Indication: Colorectal cancer metastatic
     Dosage: UNK (SINCE THE 11 TH CYCLE)
     Route: 065
     Dates: start: 202107
  2. OXALIPLATIN [Suspect]
     Active Substance: OXALIPLATIN
     Indication: Colorectal cancer metastatic
     Dosage: UNK (STOP DATE IN 2020 (SINCE THE 11 TH CYCLE)
     Route: 065
     Dates: start: 2020
  3. LEUCOVORIN [Concomitant]
     Active Substance: LEUCOVORIN
     Indication: Colorectal cancer metastatic
     Dosage: UNK (STOP DATE IN 2020 (SINCE 12TH CYCLE)
     Route: 065
     Dates: start: 2020
  4. LEUCOVORIN [Concomitant]
     Active Substance: LEUCOVORIN
     Dosage: UNK (STOP DATE IN 2020 (SINCE 12TH CYCLE)
     Route: 065
     Dates: start: 202107
  5. FLUOROURACIL [Concomitant]
     Active Substance: FLUOROURACIL
     Indication: Colorectal cancer metastatic
     Dosage: UNK (STOP DATE IN 2020 (SINCE 12TH CYCLE)
     Route: 065
     Dates: start: 2020
  6. FLUOROURACIL [Concomitant]
     Active Substance: FLUOROURACIL
     Dosage: UNK
     Route: 065
     Dates: start: 202107
  7. CETUXIMAB [Concomitant]
     Active Substance: CETUXIMAB
     Indication: Colorectal cancer metastatic
     Dosage: UNK(SINCE THE 2 ND CYCLE OF MFOLF OX6)
     Route: 065
     Dates: start: 2020
  8. AFLIBERCEPT [Concomitant]
     Active Substance: AFLIBERCEPT
     Indication: Colorectal cancer metastatic
     Dosage: UNK
     Route: 065
     Dates: start: 202107

REACTIONS (8)
  - Femoral neck fracture [Recovered/Resolved]
  - Neuropathy peripheral [Unknown]
  - Neurotoxicity [Unknown]
  - Hypertension [Recovered/Resolved]
  - Palmar-plantar erythrodysaesthesia syndrome [Recovering/Resolving]
  - Fall [Recovered/Resolved]
  - Gastrointestinal toxicity [Unknown]
  - Diarrhoea [Unknown]

NARRATIVE: CASE EVENT DATE: 20200101
